FAERS Safety Report 6257483-4 (Version None)
Quarter: 2009Q3

REPORT INFORMATION
  Report Type: 
  Country: None (occurrence: None)
  Receive Date: 20090706
  Receipt Date: 20090625
  Transmission Date: 20100115
  Serious: Yes (Hospitalization)
  Sender: FDA-Public Use
  Company Number: TR-ELI_LILLY_AND_COMPANY-TR200906006173

PATIENT
  Age: 72 Year
  Sex: Male

DRUGS (1)
  1. HUMULIN 70/30 [Suspect]
     Indication: DIABETES MELLITUS
     Dosage: 68 IU, DAILY (1/D)
     Route: 058
     Dates: start: 20030101

REACTIONS (2)
  - CAPILLARY DISORDER [None]
  - PAIN IN EXTREMITY [None]
